FAERS Safety Report 25539647 (Version 2)
Quarter: 2025Q3

REPORT INFORMATION
  Report Type: Spontaneous
  Country: EU (occurrence: EU)
  Receive Date: 20250710
  Receipt Date: 20250715
  Transmission Date: 20251020
  Serious: Yes (Hospitalization, Other)
  Sender: PFIZER
  Company Number: EU-MLMSERVICE-20250630-PI555623-00270-1

PATIENT
  Age: 49 Year
  Sex: Female

DRUGS (4)
  1. METHYLPREDNISOLONE ACETATE [Suspect]
     Active Substance: METHYLPREDNISOLONE ACETATE
     Indication: Plantar fasciitis
  2. TAMOXIFEN [Concomitant]
     Active Substance: TAMOXIFEN
     Dosage: 20 MG, 1X/DAY
  3. ASPIRIN [Concomitant]
     Active Substance: ASPIRIN
     Dosage: 100 MG, 1X/DAY
  4. LORAZEPAM [Concomitant]
     Active Substance: LORAZEPAM
     Dosage: AT BEDTIME

REACTIONS (5)
  - Neuropsychological symptoms [Unknown]
  - Mania [Recovering/Resolving]
  - Psychotic symptom [Recovering/Resolving]
  - Bipolar disorder [Recovering/Resolving]
  - Suicidal ideation [Recovered/Resolved]
